FAERS Safety Report 4843624-X (Version None)
Quarter: 2005Q4

REPORT INFORMATION
  Report Type: 
  Country: None (occurrence: None)
  Receive Date: 20051125
  Receipt Date: 20051107
  Transmission Date: 20060501
  Serious: Yes (Hospitalization)
  Sender: FDA-Public Use
  Company Number: US200511000045

PATIENT
  Age: 58 Year
  Sex: Female

DRUGS (2)
  1. HUMATROPE [Suspect]
     Dosage: 0.2 MG, DAILY (1/D), SUBCUTANEOUS
     Route: 058
     Dates: start: 20050901, end: 20051029
  2. HUMATROPEN (HUMATROPEN) [Concomitant]

REACTIONS (5)
  - DIZZINESS [None]
  - FATIGUE [None]
  - KNEE OPERATION [None]
  - MEDICAL DEVICE COMPLICATION [None]
  - PHARMACEUTICAL PRODUCT COMPLAINT [None]
